FAERS Safety Report 9640642 (Version 2)
Quarter: 2013Q4

REPORT INFORMATION
  Report Type: Spontaneous
  Country: US (occurrence: None)
  Receive Date: 20131021
  Receipt Date: 20131105
  Transmission Date: 20140711
  Serious: Yes (Death, Life-Threatening, Hospitalization)
  Sender: FDA-Public Use
  Company Number: 2012US000651

PATIENT
  Age: 47 Year
  Sex: Male
  Weight: 76.5 kg

DRUGS (8)
  1. PONATINIB (AP24534) TABLET [Suspect]
     Indication: CHRONIC MYELOID LEUKAEMIA
     Route: 048
     Dates: start: 20120605, end: 20120612
  2. ACYCLOVIR (ACYCLOVIR) [Concomitant]
  3. ALLOPURINOL [Concomitant]
  4. BENZONATATE (BENZONATATE) [Concomitant]
  5. MAGNESIUM OXIDE (MAGNESIUM OXIDE) [Concomitant]
  6. OXYCODONE HCL (OXYCODONE HYDROCHLORIDE) [Concomitant]
  7. ZYRTEC (CETIRIZINE HYDROCHLORIDE) [Concomitant]
  8. FLAGYL (METRONIDAZOLE) [Concomitant]

REACTIONS (25)
  - Hypotension [None]
  - Cerebral infarction [None]
  - Cryptosporidiosis infection [None]
  - Platelet count decreased [None]
  - Lower gastrointestinal haemorrhage [None]
  - Ulcer haemorrhage [None]
  - Gastritis haemorrhagic [None]
  - Renal failure [None]
  - Oedema peripheral [None]
  - Respiratory arrest [None]
  - Pulmonary oedema [None]
  - Diarrhoea [None]
  - Respiratory failure [None]
  - Acute respiratory distress syndrome [None]
  - Anaemia [None]
  - Coagulopathy [None]
  - Hypokalaemia [None]
  - Gastrooesophageal reflux disease [None]
  - Thrombocytopenia [None]
  - Duodenal ulcer haemorrhage [None]
  - Fatigue [None]
  - Weight decreased [None]
  - Nasal congestion [None]
  - Gastric ulcer [None]
  - Cholelithiasis [None]
